FAERS Safety Report 14742487 (Version 1)
Quarter: 2018Q2

REPORT INFORMATION
  Report Type: Spontaneous
  Country: DE (occurrence: DE)
  Receive Date: 20180410
  Receipt Date: 20180410
  Transmission Date: 20180711
  Serious: Yes (Hospitalization)
  Sender: FDA-Public Use
  Company Number: DE-WEST-WARD PHARMACEUTICALS CORP.-DE-H14001-18-02738

PATIENT
  Age: 73 Year
  Sex: Female
  Weight: 60 kg

DRUGS (12)
  1. CARBOPLATIN. [Suspect]
     Active Substance: CARBOPLATIN
     Dosage: DOSE ACCORDING TO PATIENT WEIGHT
     Route: 042
     Dates: start: 20140414, end: 20140414
  2. CARBOPLATIN. [Suspect]
     Active Substance: CARBOPLATIN
     Dosage: DOSE ACCORDING TO PATIENT WEIGHT
     Route: 042
     Dates: start: 20140707, end: 20140707
  3. CARBOPLATIN. [Suspect]
     Active Substance: CARBOPLATIN
     Dosage: DOSE ACCORDING TO PATIENT WEIGHT
     Route: 042
     Dates: start: 20140526, end: 20140526
  4. PACLITAXEL. [Suspect]
     Active Substance: PACLITAXEL
     Dosage: DOSE ACCORDING TO PATIENT WEIGHT
     Route: 042
     Dates: start: 20140505, end: 20140505
  5. PACLITAXEL. [Suspect]
     Active Substance: PACLITAXEL
     Dosage: DOSE ACCORDING TO PATIENT WEIGHT.
     Route: 042
     Dates: start: 20140414, end: 20140414
  6. PACLITAXEL. [Suspect]
     Active Substance: PACLITAXEL
     Dosage: DOSE ACCORDING TO PATIENT WEIGHT
     Route: 042
     Dates: start: 20140526, end: 20140526
  7. PACLITAXEL. [Suspect]
     Active Substance: PACLITAXEL
     Dosage: DOSE ACCORDING TO PATIENT WEIGHT
     Route: 042
     Dates: start: 20140616, end: 20140616
  8. CARBOPLATIN. [Suspect]
     Active Substance: CARBOPLATIN
     Indication: OVARIAN CANCER
     Dosage: DOSE ACCORDING TO PATIENT WEIGHT
     Route: 042
     Dates: start: 20140505, end: 20140505
  9. CARBOPLATIN. [Suspect]
     Active Substance: CARBOPLATIN
     Dosage: DOSE ACCORDING TO PATIENT WEIGHT
     Route: 042
     Dates: start: 20140616, end: 20140616
  10. PACLITAXEL. [Suspect]
     Active Substance: PACLITAXEL
     Indication: OVARIAN CANCER
     Dosage: DOSE ACCORDING TO PATIENT WEIGHT
     Route: 042
     Dates: start: 20140707, end: 20140707
  11. BEVACIZUMAB. [Suspect]
     Active Substance: BEVACIZUMAB
     Indication: OVARIAN CANCER
     Route: 042
     Dates: start: 20140707, end: 20140707
  12. BEVACIZUMAB. [Suspect]
     Active Substance: BEVACIZUMAB
     Route: 042
     Dates: start: 20140505, end: 20140505

REACTIONS (1)
  - Deep vein thrombosis [Recovering/Resolving]

NARRATIVE: CASE EVENT DATE: 20140804
